FAERS Safety Report 9197071 (Version 1)
Quarter: 2013Q1

REPORT INFORMATION
  Report Type: Spontaneous
  Country: US (occurrence: None)
  Receive Date: 20120709
  Receipt Date: 20120709
  Transmission Date: 20140127
  Serious: Yes (Other)
  Sender: FDA-Public Use
  Company Number: PHEH2012US002900

PATIENT
  Age: 56 Year
  Sex: Female

DRUGS (3)
  1. GLEEVEC (IMATINIB) UNKNOWN [Suspect]
     Indication: GASTROINTESTINAL STROMAL TUMOUR
     Dosage: 400 MG ,UNK
  2. SUTENT [Suspect]
  3. NEXAVAR [Concomitant]
     Dosage: 400 MG, 2 PER DAY

REACTIONS (3)
  - Neoplasm progression [None]
  - Drug ineffective [None]
  - Neoplasm malignant [None]
